FAERS Safety Report 21009828 (Version 4)
Quarter: 2023Q4

REPORT INFORMATION
  Report Type: Spontaneous
  Country: FR (occurrence: FR)
  Receive Date: 20220627
  Receipt Date: 20231019
  Transmission Date: 20240110
  Serious: Yes (Other)
  Sender: FDA-Public Use
  Company Number: FR-BIOGARAN-B22000913

PATIENT
  Sex: Male

DRUGS (268)
  1. TOPIRAMATE [Suspect]
     Active Substance: TOPIRAMATE
     Indication: Product used for unknown indication
     Dosage: 15 MG IN THE MORNING AND 15 MG IN THE EVENING A R 3 FOIS.
     Route: 048
     Dates: start: 20200120
  2. CYAMEMAZINE [Suspect]
     Active Substance: CYAMEMAZINE
     Indication: Product used for unknown indication
     Dosage: 30 DROPS IN THE EVENING
     Route: 065
     Dates: start: 20210421
  3. CYAMEMAZINE [Suspect]
     Active Substance: CYAMEMAZINE
     Dosage: 25 MG, QD
     Route: 065
     Dates: start: 20200619
  4. CYAMEMAZINE [Suspect]
     Active Substance: CYAMEMAZINE
     Dosage: 25 MG, QD
     Route: 065
     Dates: start: 20190222
  5. CYAMEMAZINE [Suspect]
     Active Substance: CYAMEMAZINE
     Dosage: 25 MG, QD
     Route: 065
     Dates: start: 20220201
  6. CYAMEMAZINE [Suspect]
     Active Substance: CYAMEMAZINE
     Dosage: 20 MG, QD
     Route: 065
     Dates: start: 20180523
  7. CYAMEMAZINE [Suspect]
     Active Substance: CYAMEMAZINE
     Dosage: 25 MG, QD
     Route: 065
     Dates: start: 20210625
  8. CYAMEMAZINE [Suspect]
     Active Substance: CYAMEMAZINE
     Dosage: 25 MG, QD
     Route: 065
     Dates: start: 20191121
  9. CYAMEMAZINE [Suspect]
     Active Substance: CYAMEMAZINE
     Dosage: 25 MG, QD
     Route: 065
     Dates: start: 20201228
  10. CYAMEMAZINE [Suspect]
     Active Substance: CYAMEMAZINE
     Dosage: 25 MG, QD
     Route: 065
     Dates: start: 20190520
  11. CYAMEMAZINE [Suspect]
     Active Substance: CYAMEMAZINE
     Dosage: 25 MG, QD
     Route: 065
     Dates: start: 20180426
  12. CYAMEMAZINE [Suspect]
     Active Substance: CYAMEMAZINE
     Dosage: 25 MG, QD
     Route: 065
     Dates: start: 20180828
  13. CYAMEMAZINE [Suspect]
     Active Substance: CYAMEMAZINE
     Dosage: 25 MG, QD
     Route: 065
     Dates: start: 20210917
  14. CYAMEMAZINE [Suspect]
     Active Substance: CYAMEMAZINE
     Dosage: 25 MG, QD
     Route: 065
     Dates: start: 20180615
  15. CYAMEMAZINE [Suspect]
     Active Substance: CYAMEMAZINE
     Dosage: 25 MG, QD
     Route: 065
     Dates: start: 20190307
  16. CYAMEMAZINE [Suspect]
     Active Substance: CYAMEMAZINE
     Dosage: 25 MG, QD
     Route: 065
     Dates: start: 20200504
  17. CYAMEMAZINE [Suspect]
     Active Substance: CYAMEMAZINE
     Dosage: 25 MG, QD
     Route: 065
     Dates: start: 20180109
  18. CYAMEMAZINE [Suspect]
     Active Substance: CYAMEMAZINE
     Dosage: 0.5 TABLET AT BEDTIME
     Route: 065
     Dates: start: 20171017
  19. CYAMEMAZINE [Suspect]
     Active Substance: CYAMEMAZINE
     Dosage: 25 MG, QD
     Route: 065
     Dates: start: 20200917
  20. CYAMEMAZINE [Suspect]
     Active Substance: CYAMEMAZINE
     Dosage: 25 MG, QD
     Route: 065
     Dates: start: 20181129
  21. CYAMEMAZINE [Suspect]
     Active Substance: CYAMEMAZINE
     Dosage: 25 MG, QD
     Route: 065
     Dates: start: 20220408
  22. CYAMEMAZINE [Suspect]
     Active Substance: CYAMEMAZINE
     Dosage: 25 MG, QD
     Route: 065
     Dates: start: 20180212
  23. CYAMEMAZINE [Suspect]
     Active Substance: CYAMEMAZINE
     Dosage: 25 MG, QD
     Route: 065
     Dates: start: 20210930
  24. CYAMEMAZINE [Suspect]
     Active Substance: CYAMEMAZINE
     Dosage: 25 MG, QD
     Route: 065
     Dates: start: 20200417
  25. CYAMEMAZINE [Suspect]
     Active Substance: CYAMEMAZINE
     Dosage: 25 MG, QD
     Route: 065
     Dates: start: 20200120
  26. CYAMEMAZINE [Suspect]
     Active Substance: CYAMEMAZINE
     Dosage: 25 MG, QD
     Route: 065
     Dates: start: 20180116
  27. CYAMEMAZINE [Suspect]
     Active Substance: CYAMEMAZINE
     Dosage: UNK
     Route: 065
  28. CYAMEMAZINE [Suspect]
     Active Substance: CYAMEMAZINE
     Dosage: 25 MG, QD
     Route: 065
     Dates: start: 20220121
  29. CYAMEMAZINE [Suspect]
     Active Substance: CYAMEMAZINE
     Dosage: 25 MG, QD
     Route: 065
     Dates: start: 20180904
  30. CYAMEMAZINE [Suspect]
     Active Substance: CYAMEMAZINE
     Dosage: 25 MG, QD
     Route: 065
     Dates: start: 20190829
  31. AMITRIPTYLINE HYDROCHLORIDE [Suspect]
     Active Substance: AMITRIPTYLINE HYDROCHLORIDE
     Indication: Product used for unknown indication
     Dosage: 25 MG, QD
     Route: 065
  32. AMITRIPTYLINE HYDROCHLORIDE [Suspect]
     Active Substance: AMITRIPTYLINE HYDROCHLORIDE
     Indication: Product used for unknown indication
     Dosage: 0.5 MG, QD
     Route: 065
     Dates: start: 20170104
  33. AMITRIPTYLINE HYDROCHLORIDE [Suspect]
     Active Substance: AMITRIPTYLINE HYDROCHLORIDE
     Indication: Product used for unknown indication
     Dosage: UNK UNK, QD
     Route: 065
     Dates: start: 20200818
  34. AMITRIPTYLINE HYDROCHLORIDE [Suspect]
     Active Substance: AMITRIPTYLINE HYDROCHLORIDE
     Indication: Product used for unknown indication
     Dosage: 30 DROPS
     Route: 065
     Dates: start: 20201228
  35. AMITRIPTYLINE HYDROCHLORIDE [Suspect]
     Active Substance: AMITRIPTYLINE HYDROCHLORIDE
     Dosage: 30 DROPS
     Route: 065
     Dates: start: 20220201
  36. AMITRIPTYLINE HYDROCHLORIDE [Suspect]
     Active Substance: AMITRIPTYLINE HYDROCHLORIDE
     Dosage: 30 DROPS
     Route: 065
     Dates: start: 20220408
  37. AMITRIPTYLINE HYDROCHLORIDE [Suspect]
     Active Substance: AMITRIPTYLINE HYDROCHLORIDE
     Dosage: 40 MG, QD
     Route: 065
     Dates: start: 20200818
  38. AMITRIPTYLINE HYDROCHLORIDE [Suspect]
     Active Substance: AMITRIPTYLINE HYDROCHLORIDE
     Dosage: 50 MG, QD
     Route: 065
     Dates: start: 20170330
  39. AMITRIPTYLINE HYDROCHLORIDE [Suspect]
     Active Substance: AMITRIPTYLINE HYDROCHLORIDE
     Dosage: 50 MG, QD
     Route: 065
  40. AMITRIPTYLINE HYDROCHLORIDE [Suspect]
     Active Substance: AMITRIPTYLINE HYDROCHLORIDE
     Dosage: 50 G, QD
     Route: 065
     Dates: start: 20170320
  41. AMITRIPTYLINE HYDROCHLORIDE [Suspect]
     Active Substance: AMITRIPTYLINE HYDROCHLORIDE
     Dosage: 100 MG, QD
     Route: 065
     Dates: start: 20180220
  42. AMITRIPTYLINE HYDROCHLORIDE [Suspect]
     Active Substance: AMITRIPTYLINE HYDROCHLORIDE
     Dosage: 30 DROPS
     Route: 065
     Dates: start: 20220121
  43. AMITRIPTYLINE HYDROCHLORIDE [Suspect]
     Active Substance: AMITRIPTYLINE HYDROCHLORIDE
     Dosage: 40 MG, QD
     Route: 065
     Dates: start: 20201228
  44. CYMBALTA [Suspect]
     Active Substance: DULOXETINE HYDROCHLORIDE
     Indication: Product used for unknown indication
     Dosage: 60 MG, BID
     Route: 065
     Dates: start: 20210917
  45. CYMBALTA [Suspect]
     Active Substance: DULOXETINE HYDROCHLORIDE
     Indication: Product used for unknown indication
     Dosage: 120 MG, QD
     Route: 065
     Dates: start: 20180109
  46. CYMBALTA [Suspect]
     Active Substance: DULOXETINE HYDROCHLORIDE
     Dosage: 120 MG, QD
     Route: 065
     Dates: start: 20190903
  47. CYMBALTA [Suspect]
     Active Substance: DULOXETINE HYDROCHLORIDE
     Dosage: 120 MG, QD
     Route: 065
     Dates: start: 20180904
  48. CYMBALTA [Suspect]
     Active Substance: DULOXETINE HYDROCHLORIDE
     Dosage: 60 MG, QD
     Route: 065
     Dates: start: 20170522
  49. CYMBALTA [Suspect]
     Active Substance: DULOXETINE HYDROCHLORIDE
     Dosage: 60 MG, QD
     Route: 065
     Dates: start: 20210625
  50. CYMBALTA [Suspect]
     Active Substance: DULOXETINE HYDROCHLORIDE
     Dosage: 60 MG, BID
     Route: 065
     Dates: start: 20220201
  51. CYMBALTA [Suspect]
     Active Substance: DULOXETINE HYDROCHLORIDE
     Dosage: 60 MG, BID
     Route: 065
     Dates: start: 20200917
  52. CYMBALTA [Suspect]
     Active Substance: DULOXETINE HYDROCHLORIDE
     Dosage: 60 MG, QD
     Route: 065
     Dates: start: 20170904
  53. CYMBALTA [Suspect]
     Active Substance: DULOXETINE HYDROCHLORIDE
     Dosage: 120 MG
     Route: 065
     Dates: start: 20200504
  54. CYMBALTA [Suspect]
     Active Substance: DULOXETINE HYDROCHLORIDE
     Dosage: 120 MG, QD
     Route: 065
     Dates: start: 20180828
  55. CYMBALTA [Suspect]
     Active Substance: DULOXETINE HYDROCHLORIDE
     Dosage: 60 MG, BID
     Route: 065
     Dates: start: 20220408
  56. CYMBALTA [Suspect]
     Active Substance: DULOXETINE HYDROCHLORIDE
     Dosage: 120 MG, QD
     Route: 065
     Dates: start: 20181129
  57. CYMBALTA [Suspect]
     Active Substance: DULOXETINE HYDROCHLORIDE
     Dosage: 120 MG, QD
     Route: 065
     Dates: start: 20180116
  58. CYMBALTA [Suspect]
     Active Substance: DULOXETINE HYDROCHLORIDE
     Dosage: 120 MG
     Route: 065
     Dates: start: 20200417
  59. CYMBALTA [Suspect]
     Active Substance: DULOXETINE HYDROCHLORIDE
     Dosage: 60 MG, BID
     Route: 065
     Dates: start: 20200120
  60. CYMBALTA [Suspect]
     Active Substance: DULOXETINE HYDROCHLORIDE
     Dosage: 60 MG, BID
     Route: 065
     Dates: start: 20210421
  61. CYMBALTA [Suspect]
     Active Substance: DULOXETINE HYDROCHLORIDE
     Dosage: 120 MG
     Route: 065
     Dates: start: 20200619
  62. CYMBALTA [Suspect]
     Active Substance: DULOXETINE HYDROCHLORIDE
     Dosage: 120 MG, QD
     Route: 065
     Dates: start: 20180523
  63. CYMBALTA [Suspect]
     Active Substance: DULOXETINE HYDROCHLORIDE
     Dosage: 120 MG, QD
     Route: 065
     Dates: start: 20191121
  64. CYMBALTA [Suspect]
     Active Substance: DULOXETINE HYDROCHLORIDE
     Dosage: 60 MG, BID
     Route: 065
     Dates: start: 20210930
  65. CYMBALTA [Suspect]
     Active Substance: DULOXETINE HYDROCHLORIDE
     Dosage: 60 MG, BID
     Route: 065
     Dates: start: 20220121
  66. CYMBALTA [Suspect]
     Active Substance: DULOXETINE HYDROCHLORIDE
     Dosage: 120 MG, QD
     Route: 065
     Dates: start: 20180426
  67. CYMBALTA [Suspect]
     Active Substance: DULOXETINE HYDROCHLORIDE
     Dosage: 120 MG, QD
     Route: 065
     Dates: start: 20180615
  68. CYMBALTA [Suspect]
     Active Substance: DULOXETINE HYDROCHLORIDE
     Dosage: 60 MG, QD
     Route: 065
     Dates: start: 20171017
  69. CYMBALTA [Suspect]
     Active Substance: DULOXETINE HYDROCHLORIDE
     Dosage: 120 MG, QD
     Route: 065
     Dates: start: 20190222
  70. CYMBALTA [Suspect]
     Active Substance: DULOXETINE HYDROCHLORIDE
     Dosage: 120 MG, QD
     Route: 065
     Dates: start: 20180220
  71. CYMBALTA [Suspect]
     Active Substance: DULOXETINE HYDROCHLORIDE
     Dosage: 120 MG, QD
     Route: 065
     Dates: start: 20190307
  72. CYMBALTA [Suspect]
     Active Substance: DULOXETINE HYDROCHLORIDE
     Dosage: 120 MG, QD
     Route: 065
     Dates: start: 20180420
  73. CYMBALTA [Suspect]
     Active Substance: DULOXETINE HYDROCHLORIDE
     Dosage: 120 MG, QD
     Route: 065
     Dates: start: 20190520
  74. CYMBALTA [Suspect]
     Active Substance: DULOXETINE HYDROCHLORIDE
     Dosage: 120 MG, QD
     Route: 065
     Dates: start: 20190829
  75. CYMBALTA [Suspect]
     Active Substance: DULOXETINE HYDROCHLORIDE
     Dosage: 60 MG, BID
     Route: 065
     Dates: start: 20201228
  76. CYMBALTA [Suspect]
     Active Substance: DULOXETINE HYDROCHLORIDE
     Dosage: 1 DOSAGE FORM, QD
     Route: 065
     Dates: start: 20170810
  77. CYMBALTA [Suspect]
     Active Substance: DULOXETINE HYDROCHLORIDE
     Dosage: 120 MG, QD
     Route: 065
     Dates: start: 20180212
  78. CYMBALTA [Suspect]
     Active Substance: DULOXETINE HYDROCHLORIDE
     Dosage: 30 G, QD
     Route: 065
     Dates: start: 20170418
  79. PROPRANOLOL [Suspect]
     Active Substance: PROPRANOLOL HYDROCHLORIDE
     Indication: Product used for unknown indication
     Dosage: 40 MG, QD
     Route: 065
     Dates: start: 20220221
  80. PROPRANOLOL [Suspect]
     Active Substance: PROPRANOLOL HYDROCHLORIDE
     Dosage: 40 MG, QD
     Route: 065
     Dates: start: 20201228
  81. PROPRANOLOL [Suspect]
     Active Substance: PROPRANOLOL HYDROCHLORIDE
     Dosage: 40 MG, QD
     Route: 065
     Dates: start: 20210917
  82. ZOPICLONE [Suspect]
     Active Substance: ZOPICLONE
     Indication: Product used for unknown indication
     Dosage: 7.5 MG, QD
     Route: 065
     Dates: start: 20220121
  83. ZOPICLONE [Suspect]
     Active Substance: ZOPICLONE
     Dosage: 7.5 MG, QD
     Route: 065
     Dates: start: 20220408
  84. ZOPICLONE [Suspect]
     Active Substance: ZOPICLONE
     Dosage: 7.5 MG, QD
     Route: 065
     Dates: start: 20210930
  85. ZOPICLONE [Suspect]
     Active Substance: ZOPICLONE
     Dosage: 7.5 MG, QD
     Route: 065
     Dates: start: 20201228
  86. ZOPICLONE [Suspect]
     Active Substance: ZOPICLONE
     Dosage: 7.5 MG, QD
     Route: 065
     Dates: start: 20220110
  87. DAFALGAN [Suspect]
     Active Substance: ACETAMINOPHEN
     Dosage: 1G 3 TIMES A DAY
     Dates: start: 20160818
  88. DAFALGAN [Suspect]
     Active Substance: ACETAMINOPHEN
     Dosage: 1G 3 TIMES A DAY
     Dates: start: 20170529
  89. DAFALGAN [Suspect]
     Active Substance: ACETAMINOPHEN
     Dosage: 1G 3 TIMES A DAY
     Dates: start: 20160704
  90. DAFALGAN [Suspect]
     Active Substance: ACETAMINOPHEN
     Dosage: 1G 3 TIMES A DAY
     Dates: start: 20160722
  91. DOLIPRANE [Suspect]
     Active Substance: ACETAMINOPHEN
     Dosage: 1 G 4 TIMES A DAY. A RENOUVELER 6 MOIS
     Dates: start: 20210421
  92. DOLIPRANE [Suspect]
     Active Substance: ACETAMINOPHEN
     Dosage: 1 G 6 TIMES A MONTH
     Dates: start: 20200917
  93. DOLIPRANE [Suspect]
     Active Substance: ACETAMINOPHEN
     Dosage: 2 CAPSULES 4 TIMES A DAY
     Dates: start: 20200917
  94. DOLIPRANE [Suspect]
     Active Substance: ACETAMINOPHEN
     Dosage: 1 GRAM 4 TIMES A DAY
     Dates: start: 20200818
  95. DOLIPRANE [Suspect]
     Active Substance: ACETAMINOPHEN
     Dosage: 1 G 4 TIMES A DAY. A RENOUVELER 6 MOIS
     Dates: start: 20220201
  96. DOLIPRANE [Suspect]
     Active Substance: ACETAMINOPHEN
     Dosage: 1 GRAM 4 TIMES A DAY
     Dates: start: 20201228
  97. DOLIPRANE [Suspect]
     Active Substance: ACETAMINOPHEN
     Dosage: 1 G 4 TIMES A DAY. A RENOUVELER 6 MOIS
     Dates: start: 20210917
  98. ACETAMINOPHEN\BELLADONNA LEAF\CAFFEINE\OPIUM [Suspect]
     Active Substance: ACETAMINOPHEN\BELLADONNA LEAF\CAFFEINE\OPIUM
     Dosage: 4 CAPSULES/DIE
     Dates: start: 20161208
  99. CHLORPROMAZINE [Suspect]
     Active Substance: CHLORPROMAZINE
     Dosage: 30 DROPS IN THE EVENING
     Dates: start: 20210421
  100. YEAST [Suspect]
     Active Substance: YEAST
     Dates: start: 20160622
  101. ACETAMINOPHEN [Suspect]
     Active Substance: ACETAMINOPHEN
     Dates: start: 20160616
  102. AMOXICILLIN\CLAVULANIC ACID [Suspect]
     Active Substance: AMOXICILLIN\CLAVULANIC ACID
     Dosage: 1 DF MORNING, NOON AND EVENING
     Dates: start: 20160616
  103. PROPRANOLOL [Suspect]
     Active Substance: PROPRANOLOL HYDROCHLORIDE
     Dosage: 0.5-1 DOSAGE FORM IN THE MORNING
     Dates: start: 20210917
  104. PROPRANOLOL [Suspect]
     Active Substance: PROPRANOLOL HYDROCHLORIDE
     Dosage: 1 TABLET IN THE MORNING
     Dates: start: 20220201
  105. PROPRANOLOL [Suspect]
     Active Substance: PROPRANOLOL HYDROCHLORIDE
     Dosage: 0.5-1 DOSAGE FORM IN THE MORNING
     Dates: start: 20201228
  106. PIROXICAM BETADEX [Suspect]
     Active Substance: PIROXICAM BETADEX
     Dosage: 1 TABLET/DIE
     Dates: start: 20160722
  107. PIROXICAM BETADEX [Suspect]
     Active Substance: PIROXICAM BETADEX
     Dosage: 1 TABLET/DIE
     Dates: start: 20160704
  108. AMOXICILLIN\CLAVULANIC ACID [Suspect]
     Active Substance: AMOXICILLIN\CLAVULANIC ACID
     Dosage: SACHET 1 MORNING, 1 NOON AND 1 EVENING
     Dates: start: 20160622
  109. KETOPROFEN [Suspect]
     Active Substance: KETOPROFEN
     Dosage: 2 CAPSULES/DIE
     Dates: start: 20170104
  110. ACUPAN [Suspect]
     Active Substance: NEFOPAM HYDROCHLORIDE
  111. ACUPAN [Suspect]
     Active Substance: NEFOPAM HYDROCHLORIDE
     Dosage: 1 AMPOULE 3 TIMES A DAY AR 2 FOS
     Dates: start: 20181129
  112. ACUPAN [Suspect]
     Active Substance: NEFOPAM HYDROCHLORIDE
     Dosage: 1 AMPOULE 3 TIMES A DAY
     Dates: start: 20190903
  113. ACUPAN [Suspect]
     Active Substance: NEFOPAM HYDROCHLORIDE
     Dosage: 1 AMPOULE 3 TIMES A DAY
     Dates: start: 20200504
  114. ACUPAN [Suspect]
     Active Substance: NEFOPAM HYDROCHLORIDE
     Dosage: 1 AMPOULE 3 TIMES A DAY
     Dates: start: 20180426
  115. ACUPAN [Suspect]
     Active Substance: NEFOPAM HYDROCHLORIDE
     Dosage: 1 AMPOULE 3 TIMES A DAY
     Dates: start: 20170904
  116. ACUPAN [Suspect]
     Active Substance: NEFOPAM HYDROCHLORIDE
     Dosage: 1 AMPOULE 3 TIMES A DAY
     Dates: start: 20180904
  117. ACUPAN [Suspect]
     Active Substance: NEFOPAM HYDROCHLORIDE
     Dosage: 1 AMPOULE 3 TIMES A DAY
     Dates: start: 20180212
  118. ACUPAN [Suspect]
     Active Substance: NEFOPAM HYDROCHLORIDE
     Dosage: 1 AMPOULE 3 TIMES A DAY
     Dates: start: 20180828
  119. ACUPAN [Suspect]
     Active Substance: NEFOPAM HYDROCHLORIDE
     Dosage: 1 AMPOULE 3X4 TIMES A DAY
     Dates: start: 20200120
  120. ACUPAN [Suspect]
     Active Substance: NEFOPAM HYDROCHLORIDE
     Dosage: UNKNOWN DOSAGE 3 TIMES A DAY
     Dates: start: 20180523
  121. ACUPAN [Suspect]
     Active Substance: NEFOPAM HYDROCHLORIDE
     Dosage: 1 AMPOULE 3 TIMES A DAY
     Dates: start: 20200917
  122. ACUPAN [Suspect]
     Active Substance: NEFOPAM HYDROCHLORIDE
     Dosage: 1 AMPOULE 3 TIMES A DAY
     Dates: start: 20190307
  123. ACUPAN [Suspect]
     Active Substance: NEFOPAM HYDROCHLORIDE
     Dosage: UNKNOWN DOSAGE 3 TIMES A DAY
     Dates: start: 20180109
  124. AMITRIPTYLINE HYDROCHLORIDE [Suspect]
     Active Substance: AMITRIPTYLINE HYDROCHLORIDE
     Dosage: 0.5 TABLET AT BEDTIME
     Route: 048
     Dates: start: 20170104
  125. AMITRIPTYLINE HYDROCHLORIDE [Suspect]
     Active Substance: AMITRIPTYLINE HYDROCHLORIDE
     Dosage: 1 TABLET AT BEDTIME
     Route: 048
     Dates: start: 20170111
  126. ACETAMINOPHEN\CODEINE PHOSPHATE [Suspect]
     Active Substance: ACETAMINOPHEN\CODEINE PHOSPHATE
     Dosage: NOT ASSOCIATE WITH DOLIPRANE
     Dates: start: 20160622
  127. CYAMEMAZINE [Suspect]
     Active Substance: CYAMEMAZINE
     Dosage: 1 DOSAGE FORM AT BEDTIME
     Dates: start: 20181129
  128. CYAMEMAZINE [Suspect]
     Active Substance: CYAMEMAZINE
     Dosage: 1 DOSAGE FORM IN THE EVENING
     Dates: start: 20220121
  129. CYAMEMAZINE [Suspect]
     Active Substance: CYAMEMAZINE
     Dosage: 1 TABLET IN THE EVENING
     Dates: start: 20190307
  130. CYAMEMAZINE [Suspect]
     Active Substance: CYAMEMAZINE
     Dosage: 1 DOSAGE FORM AT BEDTIME AR 2 FOIS
     Dates: start: 20190829
  131. CYAMEMAZINE [Suspect]
     Active Substance: CYAMEMAZINE
     Dosage: 1 DOSAGE FORM AT BEDTIME AR 2 FOIS
     Dates: start: 20190520
  132. CYAMEMAZINE [Suspect]
     Active Substance: CYAMEMAZINE
     Dosage: 1 DOSAGE FORM AT BEDTIME AR 2 FOIS
     Dates: start: 20210625
  133. CYAMEMAZINE [Suspect]
     Active Substance: CYAMEMAZINE
     Dosage: 0.5 TABLET AT BEDTIME
     Dates: start: 20170117
  134. CYAMEMAZINE [Suspect]
     Active Substance: CYAMEMAZINE
     Dosage: UNKNOWN DOSAGE AT BEDTIME
     Dates: start: 20180426
  135. CYAMEMAZINE [Suspect]
     Active Substance: CYAMEMAZINE
     Dosage: N THE EVENING A R 3/FOIS
     Dates: start: 20180426
  136. CYAMEMAZINE [Suspect]
     Active Substance: CYAMEMAZINE
     Dosage: N THE EVENING
     Dates: start: 20200504
  137. CYAMEMAZINE [Suspect]
     Active Substance: CYAMEMAZINE
     Dosage: 1 DOSAGE FORM AT BEDTIME
     Dates: start: 20180523
  138. CYAMEMAZINE [Suspect]
     Active Substance: CYAMEMAZINE
     Dosage: 1 DOSAGE FORM AT BEDTIME
     Dates: start: 20220408
  139. CYAMEMAZINE [Suspect]
     Active Substance: CYAMEMAZINE
     Dosage: 1 DOSAGE FORM AT BEDTIME
     Dates: start: 20180615
  140. CYAMEMAZINE [Suspect]
     Active Substance: CYAMEMAZINE
     Dosage: 1 DOSAGE FORM AT BEDTIME
     Dates: start: 20200120
  141. CYAMEMAZINE [Suspect]
     Active Substance: CYAMEMAZINE
     Dosage: AR 6 MOIS
     Dates: start: 20190903
  142. CYAMEMAZINE [Suspect]
     Active Substance: CYAMEMAZINE
     Dosage: 1 TABLET IN THE EVENING
     Dates: start: 20210917
  143. CYAMEMAZINE [Suspect]
     Active Substance: CYAMEMAZINE
     Dosage: IN THE EVENING
     Dates: start: 20200417
  144. CYAMEMAZINE [Suspect]
     Active Substance: CYAMEMAZINE
     Dosage: 1 DOSAGE FORM AT BEDTIME AR 3 FOIS
     Dates: start: 20190222
  145. CYAMEMAZINE [Suspect]
     Active Substance: CYAMEMAZINE
     Dosage: 1 DOSAGE FORM AT BEDTIME AR 3 FOIS
     Dates: start: 20190222
  146. CYAMEMAZINE [Suspect]
     Active Substance: CYAMEMAZINE
     Dosage: 1 DOSAGE FORM IN THE EVENING
     Dates: start: 20190222
  147. CYAMEMAZINE [Suspect]
     Active Substance: CYAMEMAZINE
     Dosage: 1 DOSAGE FORM IN THE EVENING AR 1 FOIS
     Dates: start: 20191121
  148. CYAMEMAZINE [Suspect]
     Active Substance: CYAMEMAZINE
     Dosage: 1 DOSAGE FORM IN THE EVENING AR 1 FOIS
     Dates: start: 20210930
  149. CYAMEMAZINE [Suspect]
     Active Substance: CYAMEMAZINE
     Dosage: 1 DOSAGE FORM AT BEDTIME
     Dates: start: 20180212
  150. CYAMEMAZINE [Suspect]
     Active Substance: CYAMEMAZINE
     Dosage: UNKNOWN DOSAGE IN THE EVENING
     Dates: start: 20180116
  151. CYAMEMAZINE [Suspect]
     Active Substance: CYAMEMAZINE
     Dosage: 1 DOSAGE FORM AT BEDTIME
     Dates: start: 20180904
  152. CYAMEMAZINE [Suspect]
     Active Substance: CYAMEMAZINE
     Dosage: 1 TABLET IN THE EVENING
     Dates: start: 20201228
  153. CYAMEMAZINE [Suspect]
     Active Substance: CYAMEMAZINE
     Dosage: 1 TABLET IN THE EVENING
     Dates: start: 20180828
  154. CYAMEMAZINE [Suspect]
     Active Substance: CYAMEMAZINE
     Dosage: 1 TABLET AT BED TIME
     Dates: start: 20180109
  155. CYAMEMAZINE [Suspect]
     Active Substance: CYAMEMAZINE
     Dosage: 1 TABLET IN THE EVENING
     Dates: start: 20200917
  156. CYMBALTA [Suspect]
     Active Substance: DULOXETINE HYDROCHLORIDE
     Dosage: 2 DOSAGE FORMS IN THE MORNING
     Dates: start: 20180420
  157. CYMBALTA [Suspect]
     Active Substance: DULOXETINE HYDROCHLORIDE
     Dosage: 2 DOSAGE FORMS IN THE MORNING
     Dates: start: 20180420
  158. CYMBALTA [Suspect]
     Active Substance: DULOXETINE HYDROCHLORIDE
     Dosage: 2 DOSAGE FORMS IN THE MORNING
     Dates: start: 20210625
  159. CYMBALTA [Suspect]
     Active Substance: DULOXETINE HYDROCHLORIDE
     Dosage: 2 DOSAGE FORMS IN THE MORNING
     Dates: start: 20180116
  160. CYMBALTA [Suspect]
     Active Substance: DULOXETINE HYDROCHLORIDE
     Dosage: 2 CAPSULES
     Dates: start: 20190520
  161. CYMBALTA [Suspect]
     Active Substance: DULOXETINE HYDROCHLORIDE
     Dosage: 2 DOSAGE FORMS IN THE MORNING
     Dates: start: 20180220
  162. CYMBALTA [Suspect]
     Active Substance: DULOXETINE HYDROCHLORIDE
     Dosage: 2 DOSAGE FORMS IN THE MORNING
     Dates: start: 20220201
  163. CYMBALTA [Suspect]
     Active Substance: DULOXETINE HYDROCHLORIDE
     Dosage: 2 CAPSULES IN THE MORNING
     Dates: start: 20180904
  164. CYMBALTA [Suspect]
     Active Substance: DULOXETINE HYDROCHLORIDE
     Dosage: 2 CAPSULES IN THE MORNING
     Dates: start: 20190829
  165. CYMBALTA [Suspect]
     Active Substance: DULOXETINE HYDROCHLORIDE
     Dosage: 1 TABLET IN THE MORNING
     Dates: start: 20170904
  166. CYMBALTA [Suspect]
     Active Substance: DULOXETINE HYDROCHLORIDE
     Dosage: 1 TABLET IN THE MORNING
     Dates: start: 20200417
  167. CYMBALTA [Suspect]
     Active Substance: DULOXETINE HYDROCHLORIDE
     Dosage: 2 CAPSULES
     Dates: start: 20190307
  168. CYMBALTA [Suspect]
     Active Substance: DULOXETINE HYDROCHLORIDE
     Dosage: 2 DOSAGE FORMS IN THE EVENING
     Dates: start: 20190222
  169. CYMBALTA [Suspect]
     Active Substance: DULOXETINE HYDROCHLORIDE
     Dosage: 1 TABLET IN THE EVENING
     Dates: start: 20170522
  170. CYMBALTA [Suspect]
     Active Substance: DULOXETINE HYDROCHLORIDE
     Dosage: 1 TABLET IN THE EVENING
     Dates: start: 20170522
  171. CYMBALTA [Suspect]
     Active Substance: DULOXETINE HYDROCHLORIDE
     Dosage: 1 DOSAGE FORM IN THE MORNING AND 1 IN THE EVENING
     Dates: start: 20200120
  172. CYMBALTA [Suspect]
     Active Substance: DULOXETINE HYDROCHLORIDE
     Dosage: 2 CAPSULES IN THE MORNING
     Dates: start: 20180212
  173. CYMBALTA [Suspect]
     Active Substance: DULOXETINE HYDROCHLORIDE
     Dosage: 1  TABLET IN THE MORNING
     Dates: start: 20170810
  174. CYMBALTA [Suspect]
     Active Substance: DULOXETINE HYDROCHLORIDE
     Dosage: 2 CAPSULES IN THE MORNING
     Dates: start: 20180109
  175. CYMBALTA [Suspect]
     Active Substance: DULOXETINE HYDROCHLORIDE
     Dosage: 2 CAPSULES IN THE EVENING
     Dates: start: 20180523
  176. CYMBALTA [Suspect]
     Active Substance: DULOXETINE HYDROCHLORIDE
     Dosage: 2 CAPSULES IN THE EVENING
     Dates: start: 20190903
  177. CYMBALTA [Suspect]
     Active Substance: DULOXETINE HYDROCHLORIDE
     Dosage: 2 CAPSULES IN THE EVENING
     Dates: start: 20180426
  178. CYMBALTA [Suspect]
     Active Substance: DULOXETINE HYDROCHLORIDE
     Dosage: 2 DOSAGE FORMS IN THE MORNING AND 2 IN THE EVENING
     Dates: start: 20230408
  179. CYMBALTA [Suspect]
     Active Substance: DULOXETINE HYDROCHLORIDE
     Dosage: 2 CAPSULES IN THE MORNING
     Dates: start: 20180615
  180. CYMBALTA [Suspect]
     Active Substance: DULOXETINE HYDROCHLORIDE
     Dosage: 2 CAPSULES IN THE MORNING
     Dates: start: 20200917
  181. CYMBALTA [Suspect]
     Active Substance: DULOXETINE HYDROCHLORIDE
     Dosage: 2 CAPSULES IN THE MORNING
     Dates: start: 20180828
  182. CYMBALTA [Suspect]
     Active Substance: DULOXETINE HYDROCHLORIDE
     Dosage: 1 CAPSULE IN THE MORNING AND 1 IN THE EVENING
     Dates: start: 20180828
  183. CYMBALTA [Suspect]
     Active Substance: DULOXETINE HYDROCHLORIDE
     Dosage: 2 DOSAGE FORMS IN THE MORNING
     Dates: start: 20191121
  184. CYMBALTA [Suspect]
     Active Substance: DULOXETINE HYDROCHLORIDE
     Dosage: 2 DOSAGE FORMS IN THE MORNING
     Dates: start: 20200619
  185. CYMBALTA [Suspect]
     Active Substance: DULOXETINE HYDROCHLORIDE
     Dosage: 1 DOSAGE FORM IN THE MORNING AND 1 IN THE EVENING
     Dates: start: 20210930
  186. CYMBALTA [Suspect]
     Active Substance: DULOXETINE HYDROCHLORIDE
     Dosage: 1 TABLET IN THE MORNING
     Dates: start: 20171017
  187. CYMBALTA [Suspect]
     Active Substance: DULOXETINE HYDROCHLORIDE
     Dosage: 2 CAPSULES IN THE MORNING
     Dates: start: 20181129
  188. CYMBALTA [Suspect]
     Active Substance: DULOXETINE HYDROCHLORIDE
     Dosage: 2 CAPSULES IN THE MORNING
     Dates: start: 20200504
  189. CYMBALTA [Suspect]
     Active Substance: DULOXETINE HYDROCHLORIDE
     Dosage: 1 DOSAGE FORM IN THE MORNING AND 1 IN THE EVENING
     Dates: start: 20211021
  190. CYMBALTA [Suspect]
     Active Substance: DULOXETINE HYDROCHLORIDE
     Dosage: 1 CAPSULE IN THE MORNING AND 1 IN THE EVENING
     Dates: start: 20210421
  191. CYMBALTA [Suspect]
     Active Substance: DULOXETINE HYDROCHLORIDE
     Dosage: 2 DOSAGE FORMS IN THE MORNING
     Dates: start: 20190222
  192. CYMBALTA [Suspect]
     Active Substance: DULOXETINE HYDROCHLORIDE
     Dosage: 1 DOSAGE FORM IN THE MORNING AND 1 IN THE EVENING
     Dates: start: 20201228
  193. AMITRIPTYLINE HYDROCHLORIDE [Suspect]
     Active Substance: AMITRIPTYLINE HYDROCHLORIDE
     Dosage: 30 DROPS IN THE EVENING
     Dates: start: 20210930
  194. AMITRIPTYLINE HYDROCHLORIDE [Suspect]
     Active Substance: AMITRIPTYLINE HYDROCHLORIDE
     Dosage: 30 DROPS IN THE EVENING
     Dates: start: 20220201
  195. AMITRIPTYLINE HYDROCHLORIDE [Suspect]
     Active Substance: AMITRIPTYLINE HYDROCHLORIDE
     Dosage: 30 DROPS IN THE EVENING
     Dates: start: 20200818
  196. AMITRIPTYLINE HYDROCHLORIDE [Suspect]
     Active Substance: AMITRIPTYLINE HYDROCHLORIDE
     Dosage: 30 DROPS IN THE EVENING
     Dates: start: 20200128
  197. AMITRIPTYLINE HYDROCHLORIDE [Suspect]
     Active Substance: AMITRIPTYLINE HYDROCHLORIDE
     Dosage: 30 DROPS AT BEDTIME
     Dates: start: 20220408
  198. AMITRIPTYLINE HYDROCHLORIDE [Suspect]
     Active Substance: AMITRIPTYLINE HYDROCHLORIDE
     Dosage: 30 DROPS IN THE EVENING
     Dates: start: 20210917
  199. TRAMADOL [Suspect]
     Active Substance: TRAMADOL\TRAMADOL HYDROCHLORIDE
     Dosage: 1 CAPSULE/DIE
  200. AMITRIPTYLINE HYDROCHLORIDE [Suspect]
     Active Substance: AMITRIPTYLINE HYDROCHLORIDE
     Dosage: 1 TABLET AT BEDTIME
     Dates: start: 20170330
  201. AMITRIPTYLINE HYDROCHLORIDE [Suspect]
     Active Substance: AMITRIPTYLINE HYDROCHLORIDE
     Dosage: 1 TABLET AT BEDTIME
     Dates: start: 20170320
  202. AMITRIPTYLINE HYDROCHLORIDE [Suspect]
     Active Substance: AMITRIPTYLINE HYDROCHLORIDE
     Dosage: 1 TABLET AT BEDTIME
     Dates: start: 2017
  203. AMITRIPTYLINE HYDROCHLORIDE [Suspect]
     Active Substance: AMITRIPTYLINE HYDROCHLORIDE
     Dosage: 75 MG IN THE EVENING
     Dates: start: 20170502
  204. AMITRIPTYLINE HYDROCHLORIDE [Suspect]
     Active Substance: AMITRIPTYLINE HYDROCHLORIDE
     Dosage: 75 MG IN THE EVENING
     Dates: start: 20170904
  205. AMITRIPTYLINE HYDROCHLORIDE [Suspect]
     Active Substance: AMITRIPTYLINE HYDROCHLORIDE
     Dosage: 75 MG IN THE EVENING
     Dates: start: 20180220
  206. ESOMEPRAZOLE MAGNESIUM [Suspect]
     Active Substance: ESOMEPRAZOLE\ESOMEPRAZOLE MAGNESIUM\ESOMEPRAZOLE MAGNESIUM DIHYDRATE
     Dosage: 1 CP/DIE
     Dates: start: 20170104
  207. CYMBALTA [Suspect]
     Active Substance: DULOXETINE HYDROCHLORIDE
     Dosage: 1 TABLET/DIE
     Dates: start: 20170418
  208. ZOPICLONE [Suspect]
     Active Substance: ZOPICLONE
     Dosage: 1 DOSAGE FORM BEFORE BEDTIME. A R 2/FOIS
     Dates: start: 20220221
  209. ZOPICLONE [Suspect]
     Active Substance: ZOPICLONE
     Dosage: 1 TABLET BEFORE BEDTIME. A RENOUVELER 6/MOIS
     Dates: start: 20201228
  210. ZOPICLONE [Suspect]
     Active Substance: ZOPICLONE
     Dosage: 1 TABLET BEFORE BEDTIME.
     Dates: start: 20220110
  211. ZOPICLONE [Suspect]
     Active Substance: ZOPICLONE
     Dosage: 1 DOSAGE FORM BEFORE BEDTIME. A RENOUVELER 2/FOIS
     Dates: start: 20220408
  212. ZOPICLONE [Suspect]
     Active Substance: ZOPICLONE
     Dosage: 1 DOSAGE FORM BEFORE BEDTIME. A R 3/FOIS
     Dates: start: 20210930
  213. TRAMADOL HYDROCHLORIDE [Suspect]
     Active Substance: TRAMADOL HYDROCHLORIDE
     Dosage: 1 CP MORNING, NOON AND EVENING
     Dates: start: 20160722
  214. TRAMADOL HYDROCHLORIDE [Suspect]
     Active Substance: TRAMADOL HYDROCHLORIDE
     Dosage: 1 CP MORNING, NOON AND EVENING
     Dates: start: 20161004
  215. TRAMADOL HYDROCHLORIDE [Suspect]
     Active Substance: TRAMADOL HYDROCHLORIDE
     Dosage: 1 CP MORNING, NOON AND EVENING
     Dates: start: 20160704
  216. TRAMADOL HYDROCHLORIDE [Suspect]
     Active Substance: TRAMADOL HYDROCHLORIDE
     Dosage: 1 CP MORNING, NOON AND EVENING
     Dates: start: 20170529
  217. TRAMADOL HYDROCHLORIDE [Suspect]
     Active Substance: TRAMADOL HYDROCHLORIDE
     Dosage: 1 CP MORNING, NOON AND EVENING
     Dates: start: 20160818
  218. INDOMETHACIN [Suspect]
     Active Substance: INDOMETHACIN
     Dosage: 2 CAPSULES/DIE
     Dates: start: 20170330
  219. PREDNISOLONE [Suspect]
     Active Substance: PREDNISOLONE
     Dates: start: 20160617
  220. DOLIPRANE [Concomitant]
     Active Substance: ACETAMINOPHEN
     Indication: Product used for unknown indication
     Dosage: 1 G, QID
     Route: 065
     Dates: start: 20210421
  221. DOLIPRANE [Concomitant]
     Active Substance: ACETAMINOPHEN
     Dosage: 1 G, QD
     Route: 065
     Dates: start: 20200917
  222. DOLIPRANE [Concomitant]
     Active Substance: ACETAMINOPHEN
     Dosage: 1 G, QID
     Route: 065
     Dates: start: 20210917
  223. DOLIPRANE [Concomitant]
     Active Substance: ACETAMINOPHEN
     Dosage: 2 DOSAGE FORM, QID
     Route: 065
     Dates: start: 20160622
  224. DOLIPRANE [Concomitant]
     Active Substance: ACETAMINOPHEN
     Dosage: 1 G, QID
     Route: 065
     Dates: start: 20200818
  225. DOLIPRANE [Concomitant]
     Active Substance: ACETAMINOPHEN
     Dosage: 1 G, QID
     Route: 065
     Dates: start: 20201228
  226. DOLIPRANE [Concomitant]
     Active Substance: ACETAMINOPHEN
     Dosage: 1 G, QID
     Route: 065
     Dates: start: 20220201
  227. DOLIPRANE [Concomitant]
     Active Substance: ACETAMINOPHEN
     Dosage: 1 G 6 TIMES A MONTH
     Route: 065
     Dates: start: 20200917
  228. ESOMEPRAZOLE MAGNESIUM [Concomitant]
     Active Substance: ESOMEPRAZOLE\ESOMEPRAZOLE MAGNESIUM\ESOMEPRAZOLE MAGNESIUM DIHYDRATE
     Indication: Product used for unknown indication
     Dosage: 20 MG, QD
     Route: 065
     Dates: start: 20170104
  229. ACETAMINOPHEN\BELLADONNA LEAF\CAFFEINE\OPIUM [Concomitant]
     Active Substance: ACETAMINOPHEN\BELLADONNA LEAF\CAFFEINE\OPIUM
     Indication: Product used for unknown indication
     Route: 065
     Dates: start: 20161208
  230. TRAMADOL [Concomitant]
     Active Substance: TRAMADOL\TRAMADOL HYDROCHLORIDE
     Indication: Product used for unknown indication
     Dosage: 1 DOSAGE FORM, BID
     Route: 065
     Dates: start: 20170529
  231. TRAMADOL [Concomitant]
     Active Substance: TRAMADOL\TRAMADOL HYDROCHLORIDE
     Dosage: 1 DOSAGE FORM, TID
     Route: 065
     Dates: start: 20161004
  232. TRAMADOL [Concomitant]
     Active Substance: TRAMADOL\TRAMADOL HYDROCHLORIDE
     Dosage: 1 DOSAGE FORM, TID
     Route: 065
     Dates: start: 20160818
  233. TRAMADOL [Concomitant]
     Active Substance: TRAMADOL\TRAMADOL HYDROCHLORIDE
     Dosage: 1 DOSAGE FORM, TID
     Route: 065
     Dates: start: 20160722
  234. TRAMADOL [Concomitant]
     Active Substance: TRAMADOL\TRAMADOL HYDROCHLORIDE
     Dosage: 1 DOSAGE FORM, TID
     Route: 065
     Dates: start: 20160704
  235. TRAMADOL [Concomitant]
     Active Substance: TRAMADOL\TRAMADOL HYDROCHLORIDE
     Dosage: 50 MG, QD
     Route: 065
     Dates: start: 20160616, end: 2016
  236. ACETAMINOPHEN [Concomitant]
     Active Substance: ACETAMINOPHEN
     Indication: Product used for unknown indication
     Dosage: UNK
     Route: 065
     Dates: start: 20160616
  237. PIROXICAM BETADEX [Concomitant]
     Active Substance: PIROXICAM BETADEX
     Indication: Product used for unknown indication
     Dosage: 1 DOSAGE FORM, QD
     Route: 065
     Dates: start: 20160722
  238. PIROXICAM BETADEX [Concomitant]
     Active Substance: PIROXICAM BETADEX
     Dosage: 1 DOSAGE FORM, QD
     Route: 065
     Dates: start: 20160704
  239. ACUPAN [Concomitant]
     Active Substance: NEFOPAM HYDROCHLORIDE
     Indication: Product used for unknown indication
     Dosage: 20 MG, TID
     Route: 065
     Dates: start: 20180523
  240. ACUPAN [Concomitant]
     Active Substance: NEFOPAM HYDROCHLORIDE
     Dosage: 20 MG, TID
     Route: 065
     Dates: start: 20180828
  241. ACUPAN [Concomitant]
     Active Substance: NEFOPAM HYDROCHLORIDE
     Dosage: 20 MG, TID
     Route: 065
     Dates: start: 20180904
  242. ACUPAN [Concomitant]
     Active Substance: NEFOPAM HYDROCHLORIDE
     Dosage: 20 MG, TID
     Route: 065
     Dates: start: 20180426
  243. ACUPAN [Concomitant]
     Active Substance: NEFOPAM HYDROCHLORIDE
     Dosage: 20 MG, TID
     Route: 065
     Dates: start: 20170904
  244. ACUPAN [Concomitant]
     Active Substance: NEFOPAM HYDROCHLORIDE
     Dosage: 20 MG, TID
     Route: 065
     Dates: start: 20200504
  245. ACUPAN [Concomitant]
     Active Substance: NEFOPAM HYDROCHLORIDE
     Dosage: 20 MG, TID
     Route: 065
     Dates: start: 20200120
  246. ACUPAN [Concomitant]
     Active Substance: NEFOPAM HYDROCHLORIDE
     Dosage: 20 MG, TID
     Route: 065
     Dates: start: 20190307
  247. ACUPAN [Concomitant]
     Active Substance: NEFOPAM HYDROCHLORIDE
     Dosage: 20 MG, TID
     Route: 065
     Dates: start: 20180212
  248. ACUPAN [Concomitant]
     Active Substance: NEFOPAM HYDROCHLORIDE
     Dosage: 20 MG, TID
     Route: 065
     Dates: start: 20181129
  249. ACUPAN [Concomitant]
     Active Substance: NEFOPAM HYDROCHLORIDE
     Dosage: 20 MG, TID
     Route: 065
     Dates: start: 20180109
  250. ACUPAN [Concomitant]
     Active Substance: NEFOPAM HYDROCHLORIDE
     Dosage: 20 MG, TID
     Route: 065
     Dates: start: 20200917
  251. ACUPAN [Concomitant]
     Active Substance: NEFOPAM HYDROCHLORIDE
     Dosage: 20 MG, TID
     Route: 065
     Dates: start: 20190903
  252. ACUPAN [Concomitant]
     Active Substance: NEFOPAM HYDROCHLORIDE
     Dosage: 20 MG, TID
     Route: 065
     Dates: start: 20190520
  253. ACETAMINOPHEN\CODEINE PHOSPHATE [Concomitant]
     Active Substance: ACETAMINOPHEN\CODEINE PHOSPHATE
     Indication: Product used for unknown indication
     Dosage: UNK
     Route: 065
     Dates: start: 20160622
  254. AUGMENTIN [Concomitant]
     Active Substance: AMOXICILLIN\CLAVULANATE POTASSIUM
     Indication: Product used for unknown indication
     Dosage: 1 DOSAGE FORM, TID
     Route: 065
     Dates: start: 20160622
  255. DAFALGAN [Concomitant]
     Active Substance: ACETAMINOPHEN
     Indication: Product used for unknown indication
     Dosage: 1 G, TID
     Route: 065
     Dates: start: 20170529
  256. DAFALGAN [Concomitant]
     Active Substance: ACETAMINOPHEN
     Dosage: 1 G, TID
     Route: 065
     Dates: start: 20160818
  257. DAFALGAN [Concomitant]
     Active Substance: ACETAMINOPHEN
     Dosage: 1 G, TID
     Route: 065
     Dates: start: 20160722
  258. DAFALGAN [Concomitant]
     Active Substance: ACETAMINOPHEN
     Dosage: 1 G, TID
     Route: 065
     Dates: start: 20160704
  259. SACCHAROMYCES CEREVISIAE [Concomitant]
     Active Substance: SACCHAROMYCES CEREVISIAE
     Indication: Product used for unknown indication
     Dosage: UNK
     Route: 065
     Dates: start: 20160622
  260. TRAMADOL HYDROCHLORIDE [Concomitant]
     Active Substance: TRAMADOL HYDROCHLORIDE
     Indication: Product used for unknown indication
     Dosage: UNK
     Route: 065
     Dates: start: 20170529
  261. TRAMADOL HYDROCHLORIDE [Concomitant]
     Active Substance: TRAMADOL HYDROCHLORIDE
     Dosage: UNK
     Route: 065
     Dates: start: 20161004
  262. TRAMADOL HYDROCHLORIDE [Concomitant]
     Active Substance: TRAMADOL HYDROCHLORIDE
     Dosage: UNK
     Route: 065
     Dates: start: 20160818
  263. TRAMADOL HYDROCHLORIDE [Concomitant]
     Active Substance: TRAMADOL HYDROCHLORIDE
     Dosage: 1 DOSAGE FORM, QD
     Route: 065
     Dates: start: 20160704
  264. TRAMADOL HYDROCHLORIDE [Concomitant]
     Active Substance: TRAMADOL HYDROCHLORIDE
     Dosage: UNK
     Route: 065
     Dates: start: 20160722
  265. PREDNISOLONE [Concomitant]
     Active Substance: PREDNISOLONE
     Indication: Product used for unknown indication
     Dosage: UNK DOSAGE FORM
     Route: 065
     Dates: start: 20160617
  266. AMOXICILLIN\CLAVULANIC ACID [Concomitant]
     Active Substance: AMOXICILLIN\CLAVULANIC ACID
     Indication: Product used for unknown indication
     Dosage: 1 DOSAGE FORM, BID
     Route: 065
     Dates: start: 20160616
  267. KETOPROFEN [Concomitant]
     Active Substance: KETOPROFEN
     Indication: Product used for unknown indication
     Dosage: 50 MG, BID
     Route: 065
     Dates: start: 20170104
  268. INDOMETHACIN [Concomitant]
     Active Substance: INDOMETHACIN
     Indication: Product used for unknown indication
     Dosage: 75 MG, BID
     Route: 065
     Dates: start: 20170330

REACTIONS (4)
  - White matter lesion [Unknown]
  - Depression [Not Recovered/Not Resolved]
  - Diffuse axonal injury [Not Recovered/Not Resolved]
  - Amyotrophy [Not Recovered/Not Resolved]
